FAERS Safety Report 8044527-2 (Version None)
Quarter: 2012Q1

REPORT INFORMATION
  Report Type: 
  Country: None (occurrence: None)
  Receive Date: 20120113
  Receipt Date: 20120110
  Transmission Date: 20120608
  Serious: Yes (Other)
  Sender: FDA-Public Use
  Company Number: US-BAYER-2012-003853

PATIENT
  Sex: Female

DRUGS (1)
  1. MIRENA [Suspect]
     Dosage: 20 MCG/24HR, CONT
     Dates: start: 20110601

REACTIONS (6)
  - POST PROCEDURAL HAEMORRHAGE [None]
  - DIARRHOEA [None]
  - CHEST PAIN [None]
  - ABDOMINAL DISTENSION [None]
  - HYPOAESTHESIA [None]
  - MIGRAINE [None]
